FAERS Safety Report 14915179 (Version 2)
Quarter: 2018Q2

REPORT INFORMATION
  Report Type: Not Available
  Country: US (occurrence: US)
  Receive Date: 20180518
  Receipt Date: 20180614
  Transmission Date: 20180711
  Serious: No
  Sender: FDA-Public Use
  Company Number: US-NEUROCRINE BIOSCIENCES INC.-2018NBI01396

PATIENT
  Age: 63 Year
  Sex: Male

DRUGS (12)
  1. INGREZZA [Suspect]
     Active Substance: VALBENAZINE
     Route: 048
     Dates: start: 20180504, end: 2018
  2. PRAVASTATIN. [Concomitant]
     Active Substance: PRAVASTATIN
  3. COREG [Concomitant]
     Active Substance: CARVEDILOL
  4. INGREZZA [Suspect]
     Active Substance: VALBENAZINE
     Indication: DYSKINESIA
     Route: 048
     Dates: start: 20180415, end: 2018
  5. METFORMIN [Concomitant]
     Active Substance: METFORMIN HYDROCHLORIDE
  6. NEXIUM [Concomitant]
     Active Substance: ESOMEPRAZOLE MAGNESIUM
  7. CRANBERRY. [Concomitant]
     Active Substance: CRANBERRY
  8. TRESIBA [Concomitant]
     Active Substance: INSULIN DEGLUDEC
  9. MULTIVITAMIN [Concomitant]
     Active Substance: VITAMINS
  10. KLOR-CON [Concomitant]
     Active Substance: POTASSIUM CHLORIDE
  11. AMLODIPINE [Concomitant]
     Active Substance: AMLODIPINE BESYLATE
  12. ASPIRIN. [Concomitant]
     Active Substance: ASPIRIN

REACTIONS (1)
  - Somnolence [Unknown]

NARRATIVE: CASE EVENT DATE: 20180415
